FAERS Safety Report 4469095-3 (Version None)
Quarter: 2004Q4

REPORT INFORMATION
  Report Type: 
  Country: None (occurrence: None)
  Receive Date: 20041008
  Receipt Date: 20040927
  Transmission Date: 20050328
  Serious: Yes (Hospitalization)
  Sender: FDA-Public Use
  Company Number: US-BRISTOL-MYERS SQUIBB COMPANY-12712568

PATIENT
  Age: 47 Year
  Sex: Female

DRUGS (17)
  1. CARBOPLATIN [Suspect]
     Indication: OVARIAN CANCER
     Dosage: INITIAL DOSE: 23-MAR-2003
     Route: 042
     Dates: start: 20030725, end: 20030725
  2. PACLITAXEL [Suspect]
     Indication: OVARIAN CANCER
     Dosage: INITIAL DOSE: 23-MAR-2003
     Route: 042
     Dates: start: 20030725, end: 20030725
  3. INTERFERON GAMMA [Suspect]
     Indication: OVARIAN CANCER
     Dosage: INITIAL DOSE: 23-MAR-2003
     Route: 058
     Dates: start: 20030725, end: 20030725
  4. BENADRYL [Concomitant]
     Dates: start: 20030725, end: 20030725
  5. ZANTAC [Concomitant]
     Dates: start: 20030725, end: 20030725
  6. ATIVAN [Concomitant]
     Dates: start: 20030725, end: 20030725
  7. KYTRIL [Concomitant]
     Dates: start: 20030725, end: 20030725
  8. POTASSIUM CHLORIDE [Concomitant]
     Dates: start: 20030725, end: 20030725
  9. MAGNESIUM SULFATE [Concomitant]
     Dates: start: 20030725, end: 20030725
  10. FERROUS SULFATE TAB [Concomitant]
     Dates: start: 20030227
  11. DECADRON [Concomitant]
     Dates: start: 20030724, end: 20030725
  12. CLONIDINE HCL [Concomitant]
     Dates: start: 20030314
  13. LISINOPRIL [Concomitant]
     Dates: start: 20030227
  14. TYLENOL [Concomitant]
     Dates: start: 20030725
  15. PAXIL [Concomitant]
     Dates: start: 20030613
  16. AMITRIPTYLINE HCL [Concomitant]
     Dates: start: 19970701
  17. NEUPOGEN [Concomitant]
     Dates: start: 20030718, end: 20030720

REACTIONS (1)
  - CHEST PAIN [None]
